FAERS Safety Report 10278159 (Version 3)
Quarter: 2014Q3

REPORT INFORMATION
  Report Type: Spontaneous
  Country: US (occurrence: US)
  Receive Date: 20140704
  Receipt Date: 20140828
  Transmission Date: 20150326
  Serious: Yes (Other)
  Sender: FDA-Public Use
  Company Number: PHEH2014US008852

PATIENT
  Sex: Male

DRUGS (1)
  1. ZOMETA [Suspect]
     Active Substance: ZOLEDRONIC ACID
     Indication: PLASMA CELL MYELOMA
     Dosage: UNK UKN, UNK
     Route: 042
     Dates: start: 2004, end: 20061113

REACTIONS (16)
  - Benign prostatic hyperplasia [Unknown]
  - Rib fracture [Unknown]
  - Cerebrovascular accident [Unknown]
  - Pulmonary valve incompetence [Unknown]
  - Rhinitis [Unknown]
  - Rib deformity [Unknown]
  - Osteosclerosis [Unknown]
  - Tricuspid valve incompetence [Unknown]
  - Aortic valve calcification [Unknown]
  - Mitral valve incompetence [Unknown]
  - Asthma [Unknown]
  - Cough [Unknown]
  - Arthritis [Unknown]
  - Bone lesion [Unknown]
  - Throat irritation [Unknown]
  - Haemorrhagic diathesis [Unknown]
